FAERS Safety Report 10558820 (Version 3)
Quarter: 2015Q3

REPORT INFORMATION
  Report Type: Report from Study
  Country: US (occurrence: US)
  Receive Date: 20141031
  Receipt Date: 20150818
  Transmission Date: 20151125
  Serious: No
  Sender: FDA-Public Use
  Company Number: US-GILEAD-2014-0120695

PATIENT
  Age: 48 Year
  Sex: Female

DRUGS (3)
  1. AMBRISENTAN [Suspect]
     Active Substance: AMBRISENTAN
     Indication: PULMONARY HYPERTENSION
     Dosage: 5 MG, QD
     Route: 065
     Dates: start: 20131228
  2. AMBRISENTAN [Suspect]
     Active Substance: AMBRISENTAN
     Indication: LEFT ATRIAL DILATATION
  3. AMBRISENTAN [Suspect]
     Active Substance: AMBRISENTAN
     Indication: AORTIC VALVE INCOMPETENCE

REACTIONS (1)
  - Unevaluable event [Recovered/Resolved]

NARRATIVE: CASE EVENT DATE: 20131228
